FAERS Safety Report 17519235 (Version 1)
Quarter: 2020Q1

REPORT INFORMATION
  Report Type: Spontaneous
  Country: US (occurrence: US)
  Receive Date: 20200310
  Receipt Date: 20200310
  Transmission Date: 20200409
  Serious: No
  Sender: FDA-Public Use
  Company Number: US-ALLERGAN-1904755US

PATIENT
  Age: 70 Year
  Sex: Female
  Weight: 71.66 kg

DRUGS (1)
  1. ESTRACE [Suspect]
     Active Substance: ESTRADIOL
     Indication: ATROPHIC VULVOVAGINITIS
     Dosage: UNK
     Route: 065
     Dates: start: 2009, end: 2009

REACTIONS (3)
  - Hypersensitivity [Recovered/Resolved]
  - Vulvovaginal burning sensation [Recovered/Resolved]
  - Pruritus [Recovered/Resolved]
